FAERS Safety Report 8574228-3 (Version None)
Quarter: 2012Q3

REPORT INFORMATION
  Report Type: 
  Country: None (occurrence: None)
  Receive Date: 20120806
  Receipt Date: 20120730
  Transmission Date: 20120928
  Serious: Yes (Death)
  Sender: FDA-Public Use
  Company Number: TH-BAXTER-2012BAX013085

PATIENT
  Sex: Female

DRUGS (1)
  1. DIANEAL PD4 LOW CALCIUM WITH 1.5% DEXTROSE [Suspect]
     Route: 033
     Dates: start: 20060418, end: 20120712

REACTIONS (1)
  - DEATH [None]
